FAERS Safety Report 8155489-1 (Version None)
Quarter: 2012Q1

REPORT INFORMATION
  Report Type: 
  Country: None (occurrence: None)
  Receive Date: 20120222
  Receipt Date: 20120213
  Transmission Date: 20120608
  Serious: Yes (Hospitalization, Other)
  Sender: FDA-Public Use
  Company Number: US-ELI_LILLY_AND_COMPANY-US201108001713

PATIENT
  Sex: Female

DRUGS (15)
  1. FORTEO [Suspect]
     Dosage: 20 UG, QD
     Dates: end: 20111017
  2. LIPITOR [Concomitant]
     Dosage: 80 MG, UNK
  3. NORVASC [Concomitant]
  4. FORTEO [Suspect]
     Indication: OSTEOPOROSIS
     Dosage: 20 UG, QD
     Route: 065
     Dates: start: 20110101
  5. PLAVIX [Concomitant]
     Dosage: 75 MG, UNK
  6. PRILOSEC [Concomitant]
  7. WELLBUTRIN [Concomitant]
  8. CELEBREX [Concomitant]
     Dosage: 200 MG, UNK
  9. NEURONTIN [Concomitant]
  10. BUSPAR [Concomitant]
  11. ASPIRIN [Concomitant]
     Dosage: 325 MG, UNK
  12. SYNTHROID [Concomitant]
  13. LORTAB [Concomitant]
     Indication: PAIN
     Dosage: UNK, PRN
  14. ATENOLOL [Concomitant]
  15. ZOLOFT [Concomitant]

REACTIONS (9)
  - CONSTIPATION [None]
  - MALAISE [None]
  - FALL [None]
  - DYSPNOEA [None]
  - ASTHMA [None]
  - ANAEMIA [None]
  - LIMB INJURY [None]
  - ERYTHEMA [None]
  - BLISTER [None]
